FAERS Safety Report 13216415 (Version 1)
Quarter: 2017Q1

REPORT INFORMATION
  Report Type: Spontaneous
  Country: JP (occurrence: JP)
  Receive Date: 20170210
  Receipt Date: 20170210
  Transmission Date: 20170428
  Serious: Yes (Hospitalization, Other)
  Sender: FDA-Public Use
  Company Number: JP-SCIEGEN PHARMACEUTICALS INC-2017SCILIT00045

PATIENT
  Age: 72 Year
  Sex: Male

DRUGS (7)
  1. AMLODIPINE [Suspect]
     Active Substance: AMLODIPINE BESYLATE
     Indication: PRODUCT USED FOR UNKNOWN INDICATION
     Dosage: UNK
     Route: 065
  2. OLMESARTAN MEDOXOMIL TABLETS 5 MG, 20 MG, 40 MG [Suspect]
     Active Substance: OLMESARTAN MEDOXOMIL
     Indication: PRODUCT USED FOR UNKNOWN INDICATION
     Dosage: UNK
     Route: 065
  3. CARVEDILOL. [Suspect]
     Active Substance: CARVEDILOL
     Indication: PRODUCT USED FOR UNKNOWN INDICATION
     Dosage: UNK
     Route: 065
  4. FEBUXOSTAT. [Suspect]
     Active Substance: FEBUXOSTAT
     Indication: PRODUCT USED FOR UNKNOWN INDICATION
     Dosage: UNK
     Route: 065
  5. FUROSEMIDE. [Suspect]
     Active Substance: FUROSEMIDE
     Indication: PRODUCT USED FOR UNKNOWN INDICATION
     Dosage: UNK
     Route: 065
  6. LANSOPRAZOLE. [Suspect]
     Active Substance: LANSOPRAZOLE
     Indication: PRODUCT USED FOR UNKNOWN INDICATION
     Dosage: UNK
     Route: 065
  7. WARFARIN [Suspect]
     Active Substance: WARFARIN
     Indication: ATRIAL FIBRILLATION
     Dosage: UNK
     Route: 065

REACTIONS (16)
  - Faeces discoloured [Unknown]
  - Anaemia [Unknown]
  - End stage renal disease [Unknown]
  - Pulmonary alveolar haemorrhage [Unknown]
  - Eosinophilia [Recovering/Resolving]
  - Activated partial thromboplastin time prolonged [Unknown]
  - Neuropathy peripheral [Recovering/Resolving]
  - Acquired haemophilia [Unknown]
  - Nephrosclerosis [Unknown]
  - Cardiomegaly [Unknown]
  - Oliguria [Unknown]
  - Disease progression [Unknown]
  - Renal atrophy [Unknown]
  - Toxicity to various agents [Recovered/Resolved]
  - Factor V inhibition [Recovered/Resolved]
  - Gastrointestinal erosion [Unknown]
